FAERS Safety Report 8389352-8 (Version None)
Quarter: 2012Q2

REPORT INFORMATION
  Report Type: 
  Country: None (occurrence: None)
  Receive Date: 20120528
  Receipt Date: 20120516
  Transmission Date: 20120825
  Serious: Yes (Other)
  Sender: FDA-Public Use
  Company Number: US-BAYER-2012-050336

PATIENT
  Age: 80 Year
  Sex: Female
  Weight: 81.633 kg

DRUGS (8)
  1. CITALOPRAM HYDROBROMIDE [Concomitant]
  2. PRAVASTATIN SODIUM [Concomitant]
  3. METOCLOPRAMIDE [Concomitant]
  4. LISINOPRIL AND HYDROCHLOROTHIAZIDE [Concomitant]
  5. ANASTROZOLE [Concomitant]
  6. NAPROXEN SODIUM [Suspect]
     Dosage: 440 MG, BID, COUNT SIZE UNSPECIFIED
     Route: 048
     Dates: start: 20120201, end: 20120516
  7. PANTOPRAZOLE [Concomitant]
  8. NAPROXEN SODIUM [Suspect]
     Indication: ARTHRITIS
     Dosage: 440 MG, BID, COUNT SIZE 100S
     Route: 048
     Dates: start: 20120201, end: 20120516

REACTIONS (2)
  - NIGHTMARE [None]
  - HALLUCINATION [None]
